FAERS Safety Report 5207736-3 (Version None)
Quarter: 2006Q4

REPORT INFORMATION
  Report Type: 
  Country: None (occurrence: None)
  Receive Date: 20061030
  Receipt Date: 20060922
  Transmission Date: 20070319
  Serious: No
  Sender: FDA-Public Use
  Company Number: 2006CT000747

PATIENT
  Age: 68 Hour
  Sex: Female
  Weight: 88.4514 kg

DRUGS (13)
  1. VENTAVIS [Suspect]
     Indication: PULMONARY HYPERTENSION
     Dosage: 5 UG; 6XD; INH
     Route: 055
     Dates: start: 20060829
  2. CALTRATE [Concomitant]
  3. ALDACTONE [Concomitant]
  4. LASIX [Concomitant]
  5. COLCHICINE [Concomitant]
  6. K-DUR 10 [Concomitant]
  7. WARFARIN SODIUM [Concomitant]
  8. ASPIRIN [Concomitant]
  9. BETAPACE [Concomitant]
  10. MUCINEX [Concomitant]
  11. VYTORIN [Concomitant]
  12. TRACLEER [Concomitant]
  13. PREVACID [Concomitant]

REACTIONS (2)
  - DYSPHONIA [None]
  - GLOSSODYNIA [None]
